FAERS Safety Report 25442572 (Version 1)
Quarter: 2025Q2

REPORT INFORMATION
  Report Type: Report from Study
  Country: US (occurrence: US)
  Receive Date: 20250617
  Receipt Date: 20250617
  Transmission Date: 20250716
  Serious: Yes (Hospitalization, Other)
  Sender: TAKEDA
  Company Number: US-TAKEDA-2022TUS016271

PATIENT
  Sex: Female
  Weight: 54 kg

DRUGS (23)
  1. TEDUGLUTIDE [Suspect]
     Active Substance: TEDUGLUTIDE
     Indication: Short-bowel syndrome
     Dosage: 2.7 MILLIGRAM, QD
  2. TEDUGLUTIDE [Suspect]
     Active Substance: TEDUGLUTIDE
     Dosage: 2.7 MILLIGRAM, QD
  3. TEDUGLUTIDE [Suspect]
     Active Substance: TEDUGLUTIDE
     Dosage: 2.7 MILLIGRAM, QD
  4. TEDUGLUTIDE [Suspect]
     Active Substance: TEDUGLUTIDE
     Dosage: 2.7 MILLIGRAM, QD
  5. TEDUGLUTIDE [Suspect]
     Active Substance: TEDUGLUTIDE
     Dosage: 2.8 MILLIGRAM, QD
  6. ENTYVIO [Concomitant]
     Active Substance: VEDOLIZUMAB
  7. VITAMIN E [Concomitant]
     Active Substance: .ALPHA.-TOCOPHEROL
  8. VITAMIN A [Concomitant]
     Active Substance: VITAMIN A
  9. B12 active [Concomitant]
  10. PEPCID [Concomitant]
     Active Substance: FAMOTIDINE
  11. STELARA [Concomitant]
     Active Substance: USTEKINUMAB
  12. TYMLOS [Concomitant]
     Active Substance: ABALOPARATIDE
  13. MAGNESIUM GLUCONATE [Concomitant]
     Active Substance: MAGNESIUM GLUCONATE
  14. COPPER [Concomitant]
     Active Substance: COPPER
  15. SELENIUM [Concomitant]
     Active Substance: SELENIUM
  16. POTASSIUM [Concomitant]
     Active Substance: POTASSIUM
  17. CALCIUM GLUCONATE [Concomitant]
     Active Substance: CALCIUM GLUCONATE
  18. D3 50 [Concomitant]
  19. VITAMIN D2 [Concomitant]
     Active Substance: ERGOCALCIFEROL
  20. CREON [Concomitant]
     Active Substance: PANCRELIPASE AMYLASE\PANCRELIPASE LIPASE\PANCRELIPASE PROTEASE
  21. CALCIUM CITRATE [Concomitant]
     Active Substance: CALCIUM CITRATE
  22. CYANOCOBALAMIN [Concomitant]
     Active Substance: CYANOCOBALAMIN
  23. PROLIA [Concomitant]
     Active Substance: DENOSUMAB

REACTIONS (10)
  - Nephrolithiasis [Unknown]
  - Constipation [Unknown]
  - Frequent bowel movements [Unknown]
  - Insurance issue [Unknown]
  - Product packaging quantity issue [Unknown]
  - Device difficult to use [Unknown]
  - Product use issue [Unknown]
  - Product dose omission issue [Unknown]
  - Nervous system disorder [Unknown]
  - Herpes zoster [Unknown]
